FAERS Safety Report 9422496 (Version 1)
Quarter: 2013Q3

REPORT INFORMATION
  Report Type: Spontaneous
  Country: US (occurrence: None)
  Receive Date: 20130725
  Receipt Date: 20130725
  Transmission Date: 20140515
  Serious: Yes (Hospitalization)
  Sender: FDA-Public Use
  Company Number: None

PATIENT
  Age: 67 Year
  Sex: Female
  Weight: 68.95 kg

DRUGS (7)
  1. AMBIEN (ZOLPIDIEM) [Suspect]
     Indication: INSOMNIA
     Route: 048
     Dates: start: 20130611, end: 20130611
  2. LORTAB [Concomitant]
  3. NEURONTIN [Concomitant]
  4. ELVAIL [Concomitant]
  5. VITAMIN [Concomitant]
  6. BAYER [Concomitant]
  7. OCUVITE [Concomitant]

REACTIONS (3)
  - Amnesia [None]
  - Hallucination [None]
  - Road traffic accident [None]
